FAERS Safety Report 14523598 (Version 2)
Quarter: 2018Q1

REPORT INFORMATION
  Report Type: Report from Study
  Country: None (occurrence: US)
  Receive Date: 20180212
  Receipt Date: 20180215
  Transmission Date: 20180509
  Serious: Yes (Hospitalization)
  Sender: FDA-Public Use
  Company Number: US-ABBVIE-18P-163-2250240-00

PATIENT
  Sex: Male
  Weight: 65.83 kg

DRUGS (5)
  1. KEPPRA [Concomitant]
     Active Substance: LEVETIRACETAM
     Indication: EPILEPSY
     Route: 065
  2. DEPAKOTE [Suspect]
     Active Substance: DIVALPROEX SODIUM
     Indication: EPILEPSY
     Dosage: 500MG AT NIGHT AND 250 IN AM
     Route: 048
     Dates: start: 1989
  3. DILANTIN [Concomitant]
     Active Substance: PHENYTOIN
     Indication: EPILEPSY
     Route: 065
  4. TEGRETOL [Concomitant]
     Active Substance: CARBAMAZEPINE
     Indication: EPILEPSY
     Route: 065
  5. NEURONTIN [Concomitant]
     Active Substance: GABAPENTIN
     Indication: EPILEPSY
     Route: 065

REACTIONS (1)
  - Epilepsy [Recovering/Resolving]

NARRATIVE: CASE EVENT DATE: 2008
